FAERS Safety Report 18087443 (Version 1)
Quarter: 2020Q3

REPORT INFORMATION
  Report Type: Spontaneous
  Country: US (occurrence: US)
  Receive Date: 20200729
  Receipt Date: 20200729
  Transmission Date: 20201103
  Serious: Yes (Hospitalization)
  Sender: FDA-Public Use
  Company Number: None

PATIENT
  Sex: Female

DRUGS (1)
  1. STELARA [Suspect]
     Active Substance: USTEKINUMAB
     Indication: CROHN^S DISEASE
     Dosage: ?          OTHER DOSE:90MG/1ML;OTHER FREQUENCY:EVERY EIGHT WEEKS;?
     Route: 058
     Dates: start: 201911, end: 202005

REACTIONS (4)
  - Obstruction [None]
  - Abdominal pain [None]
  - Drug ineffective [None]
  - Stenosis [None]
